FAERS Safety Report 17246122 (Version 1)
Quarter: 2020Q1

REPORT INFORMATION
  Report Type: Report from Study
  Country: IT (occurrence: IT)
  Receive Date: 20200108
  Receipt Date: 20200108
  Transmission Date: 20200409
  Serious: Yes (Hospitalization)
  Sender: FDA-Public Use
  Company Number: IT-TEVA-2019-IT-1117544

PATIENT
  Age: 73 Year
  Sex: Female

DRUGS (7)
  1. CARDURA [Concomitant]
     Active Substance: DOXAZOSIN MESYLATE
  2. CALCITRIOL. [Concomitant]
     Active Substance: CALCITRIOL
  3. CLENIL 250 MICROGRAMMI SOLUZIONE PRESSURIZZATA PER INALAZIONE [Concomitant]
  4. BISOPROLOL HEMIFUMARATE [Suspect]
     Active Substance: BISOPROLOL FUMARATE
     Indication: CARDIAC FAILURE
     Route: 048
     Dates: start: 20190301, end: 20190310
  5. EUTIROX 25 MICROGRAMMI COMPRESSE [Suspect]
     Active Substance: LEVOTHYROXINE SODIUM
     Indication: HYPOTHYROIDISM
     Route: 048
     Dates: start: 20190301, end: 20190310
  6. OMEPRAZOLE. [Concomitant]
     Active Substance: OMEPRAZOLE
  7. TACHIDOL 500 MG/30 MG COMPRESSE RIVESTITE CON FILM [Concomitant]
     Active Substance: ACETAMINOPHEN\CODEINE PHOSPHATE

REACTIONS (1)
  - Supraventricular tachycardia [Recovered/Resolved]

NARRATIVE: CASE EVENT DATE: 20190310
